FAERS Safety Report 5856280-9 (Version None)
Quarter: 2008Q3

REPORT INFORMATION
  Report Type: 
  Country: None (occurrence: None)
  Receive Date: 20080825
  Receipt Date: 20080819
  Transmission Date: 20090109
  Serious: Yes (Hospitalization)
  Sender: FDA-Public Use
  Company Number: B0533572A

PATIENT
  Age: 74 Year
  Sex: Female

DRUGS (3)
  1. SERETIDE [Suspect]
     Indication: ASTHMA
     Dosage: 2PUFF TWICE PER DAY
     Route: 055
     Dates: start: 20080401
  2. VENTOLIN [Suspect]
     Indication: ASTHMA
     Dosage: 100MCG AS REQUIRED
     Route: 055
  3. WARFARIN SODIUM [Concomitant]

REACTIONS (4)
  - DRUG LEVEL DECREASED [None]
  - DRUG LEVEL INCREASED [None]
  - DYSPNOEA [None]
  - EPISTAXIS [None]
